FAERS Safety Report 8789872 (Version 2)
Quarter: 2012Q4

REPORT INFORMATION
  Report Type: 
  Country: BR (occurrence: BR)
  Receive Date: 20120914
  Receipt Date: 20121018
  Transmission Date: 20130627
  Serious: Yes (Other)
  Sender: FDA-Public Use
  Company Number: BR-PFIZER INC-2012222889

PATIENT
  Age: 68 Year
  Sex: Female

DRUGS (4)
  1. XALATAN [Suspect]
     Indication: GLAUCOMA
     Dosage: 1 Gtt in each eye, 1x/day (total dose: 3ug/day)
     Route: 047
     Dates: start: 20111019, end: 201209
  2. DIAZEPAM [Concomitant]
     Indication: INSOMNIA
     Dosage: UNK, as needed
     Dates: start: 2007
  3. DIAZEPAM [Concomitant]
     Indication: FEELING OF RELAXATION
  4. LOSARTAN POTASSIUM [Concomitant]
     Indication: HYPERTENSION
     Dosage: 1 DF, 2x/day (2 tablets daily)
     Dates: start: 2011

REACTIONS (2)
  - Diabetes mellitus [Unknown]
  - Ocular discomfort [Unknown]
